FAERS Safety Report 20195630 (Version 1)
Quarter: 2021Q4

REPORT INFORMATION
  Report Type: Spontaneous
  Country: US (occurrence: None)
  Receive Date: 20211216
  Receipt Date: 20211216
  Transmission Date: 20220303
  Serious: Yes (Death)
  Sender: FDA-Public Use
  Company Number: None

PATIENT
  Sex: Female

DRUGS (1)
  1. AKYNZEO [Suspect]
     Active Substance: NETUPITANT\PALONOSETRON HYDROCHLORIDE
     Indication: Gastric cancer
     Dosage: OTHER QUANTITY : 1 CAPSULE;?FREQUENCY : EVERY OTHER WEEK;?
     Route: 048
     Dates: start: 20210709, end: 20211216

REACTIONS (1)
  - Death [None]
